FAERS Safety Report 24799889 (Version 1)
Quarter: 2025Q1

REPORT INFORMATION
  Report Type: Spontaneous
  Country: US (occurrence: None)
  Receive Date: 20250102
  Receipt Date: 20250102
  Transmission Date: 20250408
  Serious: Yes (Hospitalization)
  Sender: FDA-CTU
  Company Number: None

PATIENT
  Age: 6 Year
  Sex: Male

DRUGS (1)
  1. KANUMA [Suspect]
     Active Substance: SEBELIPASE ALFA
     Indication: Lipid metabolism disorder
     Dosage: FREQUENCY : WEEKLY;?
     Route: 042
     Dates: start: 202208

REACTIONS (3)
  - Respiratory syncytial virus test positive [None]
  - Staphylococcus test positive [None]
  - Intentional dose omission [None]

NARRATIVE: CASE EVENT DATE: 20241203
